FAERS Safety Report 13416882 (Version 6)
Quarter: 2017Q3

REPORT INFORMATION
  Report Type: Spontaneous
  Country: KR (occurrence: KR)
  Receive Date: 20170407
  Receipt Date: 20170823
  Transmission Date: 20171127
  Serious: Yes (Hospitalization, Other)
  Sender: FDA-Public Use
  Company Number: KR-009507513-1704KOR001153

PATIENT
  Age: 80 Year
  Sex: Male
  Weight: 42.4 kg

DRUGS (26)
  1. METOCLOPRAMIDE HYDROCHLORIDE. [Concomitant]
     Active Substance: METOCLOPRAMIDE HYDROCHLORIDE
     Indication: PROPHYLAXIS
     Dosage: 5 MG (1 TABLET), TID
     Route: 048
     Dates: start: 20170107, end: 20170112
  2. DOXORUBICIN HYDROCHLORIDE. [Concomitant]
     Active Substance: DOXORUBICIN HYDROCHLORIDE
     Indication: LYMPHOMA
     Dosage: 34 MG, ONCE (CYCLE 2) (STRENGTH: 50MG/25ML)
     Route: 042
     Dates: start: 20170131, end: 20170131
  3. ALOXI [Concomitant]
     Active Substance: PALONOSETRON HYDROCHLORIDE
     Dosage: 5 ML, ONCE
     Route: 042
     Dates: start: 20170304, end: 20170304
  4. FINASTAR [Concomitant]
     Indication: PROPHYLAXIS
     Dosage: 5 MG (1 TABLET), QD
     Route: 048
  5. LORAZEPAM. [Concomitant]
     Active Substance: LORAZEPAM
     Indication: PROPHYLAXIS
     Dosage: 1 MG (1 TABLET), QD
     Route: 048
  6. FAMOTIDINE. [Concomitant]
     Active Substance: FAMOTIDINE
     Indication: PROPHYLAXIS
     Dosage: 1 TABLET BID, AFTER EVERY CHEMOTHERAPY FOR 5 DAYS
     Route: 048
     Dates: start: 20170104, end: 20170308
  7. REQUIP [Concomitant]
     Active Substance: ROPINIROLE HYDROCHLORIDE
     Indication: PROPHYLAXIS
     Dosage: 0.25 MG (1 TABLET), QD
     Route: 048
  8. HEXAMEDINE [Concomitant]
     Indication: PROPHYLAXIS
     Dosage: 1 BOTTLE, QID (ROUTE: GARGLE)
     Route: 050
     Dates: start: 20170104, end: 20170220
  9. DOXORUBICIN HYDROCHLORIDE. [Concomitant]
     Active Substance: DOXORUBICIN HYDROCHLORIDE
     Indication: LYMPHOMA
     Dosage: 34 MG, ONCE (CYCLE 1)
     Route: 042
     Dates: start: 20170104, end: 20170104
  10. SOLONDO [Concomitant]
     Active Substance: PREDNISOLONE
     Indication: PREMEDICATION
     Dosage: 20MG FOR MORNING AND LUNCH TIME, 15MG FOR DINNER TIME
     Route: 048
     Dates: start: 20170104, end: 20170108
  11. ENDOXAN [Concomitant]
     Active Substance: CYCLOPHOSPHAMIDE
     Dosage: 540 MG, ONCE (CYCLE 3)
     Route: 042
     Dates: start: 20170304, end: 20170304
  12. VINCRISTINE SULFATE. [Concomitant]
     Active Substance: VINCRISTINE SULFATE
     Indication: LYMPHOMA
     Dosage: 1 MG, ONCE (CYCLE 1)
     Route: 042
     Dates: start: 20170104, end: 20170104
  13. VINCRISTINE SULFATE. [Concomitant]
     Active Substance: VINCRISTINE SULFATE
     Dosage: 1 MG, ONCE (CYCLE 3)
     Route: 042
     Dates: start: 20170304, end: 20170304
  14. SOLONDO [Concomitant]
     Active Substance: PREDNISOLONE
     Dosage: 20MG FOR MORNING AND LUNCH TIME, 15MG FOR DINNER TIME
     Route: 048
     Dates: start: 20170131, end: 20170204
  15. ALOXI [Concomitant]
     Active Substance: PALONOSETRON HYDROCHLORIDE
     Dosage: 5 ML, ONCE
     Route: 042
     Dates: start: 20170131, end: 20170131
  16. SMOODIPIN [Concomitant]
     Indication: PROPHYLAXIS
     Dosage: 0.5 TABLET, QD
     Route: 048
  17. EMEND (FOSAPREPITANT DIMEGLUMINE) [Suspect]
     Active Substance: FOSAPREPITANT DIMEGLUMINE
     Indication: PROPHYLAXIS OF NAUSEA AND VOMITING
     Dosage: 150 MG, ONCE
     Route: 042
     Dates: start: 20170104, end: 20170104
  18. ENDOXAN [Concomitant]
     Active Substance: CYCLOPHOSPHAMIDE
     Dosage: 540 MG, ONCE (CYCLE 2)
     Route: 042
     Dates: start: 20170131, end: 20170131
  19. SOLONDO [Concomitant]
     Active Substance: PREDNISOLONE
     Dosage: 20MG FOR MORNING AND LUNCH TIME, 15MG FOR DINNER TIME
     Route: 048
     Dates: start: 20170304, end: 20170308
  20. EMEND (FOSAPREPITANT DIMEGLUMINE) [Suspect]
     Active Substance: FOSAPREPITANT DIMEGLUMINE
     Dosage: 150 MG, ONCE
     Route: 042
     Dates: start: 20170131, end: 20170131
  21. EMEND (FOSAPREPITANT DIMEGLUMINE) [Suspect]
     Active Substance: FOSAPREPITANT DIMEGLUMINE
     Dosage: 150 MG, ONCE
     Route: 042
     Dates: start: 20170304, end: 20170304
  22. ENDOXAN [Concomitant]
     Active Substance: CYCLOPHOSPHAMIDE
     Indication: LYMPHOMA
     Dosage: 540 MG, ONCE (CYCLE 1)
     Route: 042
     Dates: start: 20170104, end: 20170104
  23. DOXORUBICIN HYDROCHLORIDE. [Concomitant]
     Active Substance: DOXORUBICIN HYDROCHLORIDE
     Dosage: 34 MG, ONCE (CYCLE 3) (STRENGTH: 50MG/25ML)
     Route: 042
     Dates: start: 20170304, end: 20170304
  24. ALOXI [Concomitant]
     Active Substance: PALONOSETRON HYDROCHLORIDE
     Indication: PREMEDICATION
     Dosage: 5 ML, ONCE
     Route: 042
     Dates: start: 20170104, end: 20170104
  25. HARNAL [Concomitant]
     Active Substance: TAMSULOSIN HYDROCHLORIDE
     Indication: PROPHYLAXIS
     Dosage: 0.2 MG (1 TABLET), QD
     Route: 048
  26. VINCRISTINE SULFATE. [Concomitant]
     Active Substance: VINCRISTINE SULFATE
     Dosage: 1 MG, ONCE (CYCLE 2)
     Route: 042
     Dates: start: 20170131, end: 20170131

REACTIONS (7)
  - Pyrexia [Recovered/Resolved]
  - Upper respiratory tract infection [Recovered/Resolved]
  - Medical device site infection [Recovered/Resolved]
  - Haematochezia [Recovered/Resolved]
  - Haemoptysis [Recovered/Resolved]
  - Myalgia [Recovered/Resolved]
  - Hypotension [Recovered/Resolved]

NARRATIVE: CASE EVENT DATE: 20170109
